FAERS Safety Report 25457891 (Version 2)
Quarter: 2025Q2

REPORT INFORMATION
  Report Type: Spontaneous
  Country: US (occurrence: US)
  Receive Date: 20250620
  Receipt Date: 20250625
  Transmission Date: 20250717
  Serious: No
  Sender: Haleon PLC
  Company Number: US-HALEON-2246895

PATIENT

DRUGS (1)
  1. TUMS CHEWY BITES TROPICAL FRUIT SMOOTHIE [Suspect]
     Active Substance: CALCIUM CARBONATE
     Indication: Dyspepsia

REACTIONS (2)
  - Product use complaint [Unknown]
  - Product physical consistency issue [Unknown]
